FAERS Safety Report 25261901 (Version 1)
Quarter: 2025Q2

REPORT INFORMATION
  Report Type: Spontaneous
  Country: RW (occurrence: RW)
  Receive Date: 20250502
  Receipt Date: 20250502
  Transmission Date: 20250716
  Serious: Yes (Death, Other)
  Sender: BRISTOL-MYERS SQUIBB COMPANY
  Company Number: RW-BRISTOL-MYERS SQUIBB COMPANY-2025-062056

PATIENT
  Age: 44 Year
  Sex: Male

DRUGS (1)
  1. SPRYCEL [Suspect]
     Active Substance: DASATINIB
     Indication: Chronic myeloid leukaemia
     Dosage: DOSAGE: 100 MG (2X50 TABLETS)

REACTIONS (1)
  - Death [Fatal]
